FAERS Safety Report 11701552 (Version 4)
Quarter: 2016Q3

REPORT INFORMATION
  Report Type: Spontaneous
  Country: DK (occurrence: DK)
  Receive Date: 20151105
  Receipt Date: 20160921
  Transmission Date: 20161109
  Serious: Yes (Hospitalization)
  Sender: FDA-Public Use
  Company Number: DK-PFIZER INC-2015372907

PATIENT
  Age: 88 Year
  Sex: Female
  Weight: 61 kg

DRUGS (12)
  1. LISINOPRIL DIHYDRATE 2 CARE 4 [Concomitant]
  2. UNIKALK SENIOR [Concomitant]
  3. MARBODIN [Concomitant]
  4. LYRICA [Suspect]
     Active Substance: PREGABALIN
     Indication: ANXIETY
     Dosage: 25 MG, 2X/DAY
     Route: 048
     Dates: start: 20150911, end: 20150914
  5. COMBAR [Concomitant]
  6. VITAMIN D3 [Concomitant]
     Active Substance: CHOLECALCIFEROL
  7. MOXALOLE [Concomitant]
  8. PINEX [Concomitant]
     Active Substance: ACETAMINOPHEN
  9. VITAMINERAL [Concomitant]
  10. CENTYL MED KALIUMKLORID [Concomitant]
     Active Substance: BENDROFLUMETHIAZIDE\POTASSIUM CHLORIDE
  11. METOPROLOLSUCCINAT HEXAL [Concomitant]
     Active Substance: METOPROLOL SUCCINATE
  12. NOVOMIX [Concomitant]
     Active Substance: INSULIN ASPART
     Indication: DIABETES MELLITUS

REACTIONS (7)
  - Coordination abnormal [Recovered/Resolved]
  - Constipation [Recovered/Resolved]
  - Back pain [Recovered/Resolved]
  - Pain in extremity [Recovered/Resolved]
  - Walking disability [Recovered/Resolved]
  - Dysarthria [Recovered/Resolved]
  - Confusional state [Recovered/Resolved]

NARRATIVE: CASE EVENT DATE: 20150914
